FAERS Safety Report 20216442 (Version 1)
Quarter: 2021Q4

REPORT INFORMATION
  Report Type: Spontaneous
  Country: US (occurrence: US)
  Receive Date: 20211222
  Receipt Date: 20211222
  Transmission Date: 20220303
  Serious: Yes (Other)
  Sender: FDA-Public Use
  Company Number: US-drreddys-SPO/USA/21/0144795

PATIENT
  Age: 48 Year
  Sex: Male
  Weight: 74.25 kg

DRUGS (3)
  1. BUPRENORPHINE\NALOXONE [Suspect]
     Active Substance: BUPRENORPHINE\NALOXONE
     Indication: Dependence
     Dosage: 8 MG/2 MG
     Route: 060
     Dates: start: 20211206
  2. BUPRENORPHINE\NALOXONE [Suspect]
     Active Substance: BUPRENORPHINE\NALOXONE
     Dosage: 8 MG/2 MG
     Route: 060
     Dates: start: 20211206
  3. VITAMINS [Concomitant]
     Active Substance: VITAMINS
     Indication: Product used for unknown indication

REACTIONS (7)
  - Drug ineffective [Unknown]
  - Neuralgia [Unknown]
  - Paraesthesia [Unknown]
  - Feeling abnormal [Unknown]
  - Headache [Unknown]
  - Extra dose administered [Unknown]
  - Product quality issue [Unknown]
